FAERS Safety Report 9092656 (Version 1)
Quarter: 2013Q1

REPORT INFORMATION
  Report Type: Report from Study
  Country: US (occurrence: US)
  Receive Date: 20130218
  Receipt Date: 20130218
  Transmission Date: 20140127
  Serious: No
  Sender: FDA-Public Use
  Company Number: US-ABBOTT-13P-163-1031262-00

PATIENT
  Sex: Male

DRUGS (2)
  1. SIMCOR [Suspect]
     Indication: HIGH DENSITY LIPOPROTEIN DECREASED
     Dosage: 6 MONTHS AT CURRENT DOSE
  2. SIMCOR [Suspect]
     Dosage: UNKNOWN DOSE, STOPPED

REACTIONS (1)
  - High density lipoprotein decreased [Not Recovered/Not Resolved]
